FAERS Safety Report 4870640-4 (Version None)
Quarter: 2005Q4

REPORT INFORMATION
  Report Type: 
  Country: None (occurrence: None)
  Receive Date: 20051228
  Receipt Date: 20051216
  Transmission Date: 20060501
  Serious: Yes (Hospitalization)
  Sender: FDA-Public Use
  Company Number: USA0507102540

PATIENT
  Age: 9 Year
  Sex: Female

DRUGS (4)
  1. STRATTERA [Suspect]
     Dosage: 25 MG, UNKNOWN, UNK
     Route: 065
  2. CONCERTA [Concomitant]
  3. WELLBUTRIN [Concomitant]
  4. BENADRYL [Concomitant]

REACTIONS (5)
  - CONVULSION [None]
  - DRUG INEFFECTIVE [None]
  - HYPERTENSIVE ENCEPHALOPATHY [None]
  - PYREXIA [None]
  - SLEEP DISORDER [None]
